FAERS Safety Report 14235108 (Version 1)
Quarter: 2017Q4

REPORT INFORMATION
  Report Type: Spontaneous
  Country: GB (occurrence: GB)
  Receive Date: 20171129
  Receipt Date: 20171129
  Transmission Date: 20180321
  Serious: Yes (Death, Other)
  Sender: FDA-Public Use
  Company Number: GB-ROCHE-2031837

PATIENT
  Age: 92 Year
  Sex: Female
  Weight: 48 kg

DRUGS (11)
  1. ACTILYSE [Suspect]
     Active Substance: ALTEPLASE
     Indication: THROMBOLYSIS
     Route: 042
     Dates: start: 20171014, end: 20171014
  2. SIMVASTATIN. [Concomitant]
     Active Substance: SIMVASTATIN
  3. LOPERAMIDE [Concomitant]
     Active Substance: LOPERAMIDE
  4. OMEPRAZOLE. [Concomitant]
     Active Substance: OMEPRAZOLE
  5. FOLIC ACID. [Concomitant]
     Active Substance: FOLIC ACID
  6. CLOPIDOGREL [Concomitant]
     Active Substance: CLOPIDOGREL BISULFATE
  7. TEMAZEPAM. [Concomitant]
     Active Substance: TEMAZEPAM
  8. COLESTYRAMINE [Concomitant]
     Active Substance: CHOLESTYRAMINE
  9. MIRTAZAPINE. [Concomitant]
     Active Substance: MIRTAZAPINE
  10. GANFORT [Concomitant]
     Active Substance: BIMATOPROST\TIMOLOL
  11. FELODIPINE. [Concomitant]
     Active Substance: FELODIPINE

REACTIONS (2)
  - Coma scale abnormal [Not Recovered/Not Resolved]
  - Cerebral haemorrhage [Fatal]

NARRATIVE: CASE EVENT DATE: 20171014
